FAERS Safety Report 23827081 (Version 1)
Quarter: 2024Q2

REPORT INFORMATION
  Report Type: Report from Study
  Country: US (occurrence: US)
  Receive Date: 20240507
  Receipt Date: 20240507
  Transmission Date: 20240715
  Serious: Yes (Other)
  Sender: FDA-Public Use
  Company Number: US-ABBVIE-5745252

PATIENT
  Sex: Female

DRUGS (1)
  1. HUMIRA [Suspect]
     Active Substance: ADALIMUMAB
     Indication: Ankylosing spondylitis
     Dosage: FORM STRENGTH: 40 MILLIGRAM?CITRATE FREE
     Route: 058

REACTIONS (6)
  - Parathyroid gland operation [Unknown]
  - Multiple fractures [Unknown]
  - Spinal operation [Unknown]
  - Spinal operation [Unknown]
  - Spinal operation [Unknown]
  - Transfusion [Unknown]

NARRATIVE: CASE EVENT DATE: 20140101
